FAERS Safety Report 5250544-8 (Version None)
Quarter: 2007Q1

REPORT INFORMATION
  Report Type: 
  Country: None (occurrence: None)
  Receive Date: 20070228
  Receipt Date: 20070215
  Transmission Date: 20070707
  Serious: Yes (Other)
  Sender: FDA-Public Use
  Company Number: PHEH2007US02095

PATIENT
  Age: 42 Year
  Sex: Male

DRUGS (3)
  1. ZOMETA [Suspect]
     Indication: MULTIPLE MYELOMA
     Dosage: 4  EVERY 4 (UNITS AND TIME FRAME UNSPEC.)
  2. THALIDOMIDE [Concomitant]
  3. DEXAMETHASONE [Concomitant]

REACTIONS (3)
  - BONE DISORDER [None]
  - IMPAIRED HEALING [None]
  - TOOTH EXTRACTION [None]
